FAERS Safety Report 9184338 (Version 1)
Quarter: 2013Q1

REPORT INFORMATION
  Report Type: Spontaneous
  Country: US (occurrence: US)
  Receive Date: 20130322
  Receipt Date: 20130322
  Transmission Date: 20140127
  Serious: Yes (Hospitalization)
  Sender: FDA-Public Use
  Company Number: US-GLAXOSMITHKLINE-A1015979A

PATIENT
  Age: 64 Year
  Sex: Female

DRUGS (10)
  1. BENLYSTA [Suspect]
     Indication: SYSTEMIC LUPUS ERYTHEMATOSUS
     Route: 042
     Dates: start: 201206, end: 201209
  2. PLAQUENIL [Concomitant]
  3. PLAVIX [Concomitant]
  4. FOLGARD [Concomitant]
  5. CALCIUM [Concomitant]
  6. AMLODIPINE [Concomitant]
  7. CYMBALTA [Concomitant]
  8. CRANBERRY [Concomitant]
  9. ADVAIR [Concomitant]
  10. SPIRIVA [Concomitant]

REACTIONS (2)
  - Sepsis [Recovered/Resolved]
  - Pyrexia [Unknown]
